FAERS Safety Report 4287256-3 (Version None)
Quarter: 2004Q1

REPORT INFORMATION
  Report Type: 
  Country: None (occurrence: None)
  Receive Date: 20040126
  Receipt Date: 20031009
  Transmission Date: 20041129
  Serious: No
  Sender: FDA-Public Use
  Company Number: USA030639462

PATIENT
  Age: 82 Year
  Sex: Female
  Weight: 61 kg

DRUGS (3)
  1. EVISTA [Suspect]
     Indication: OSTEOPOROSIS
     Dosage: 60 UG/DAY
     Dates: start: 20030201
  2. FORTEO [Suspect]
     Indication: OSTEOPOROSIS
     Dosage: 20 UG/DAY
     Dates: start: 20030714
  3. MULTIVITAMIN [Concomitant]

REACTIONS (9)
  - ASTHENIA [None]
  - DYSPEPSIA [None]
  - FEELING ABNORMAL [None]
  - GLOSSODYNIA [None]
  - HOT FLUSH [None]
  - INJECTION SITE ERYTHEMA [None]
  - INJECTION SITE INFLAMMATION [None]
  - NAUSEA [None]
  - URINARY TRACT INFECTION [None]
